FAERS Safety Report 6555662-X (Version None)
Quarter: 2010Q1

REPORT INFORMATION
  Report Type: 
  Country: None (occurrence: None)
  Receive Date: 20100128
  Receipt Date: 20100118
  Transmission Date: 20100710
  Serious: Yes (Hospitalization, Other)
  Sender: FDA-Public Use
  Company Number: PHEH2008US06110

PATIENT
  Sex: Female

DRUGS (46)
  1. VIVELLE-DOT [Suspect]
     Indication: MENOPAUSAL SYMPTOMS
     Dosage: 0.1 MG, UNK
     Dates: start: 19981101, end: 20011001
  2. AYGESTIN [Suspect]
     Indication: MENOPAUSAL SYMPTOMS
     Dosage: 5 MG, UNK
     Dates: start: 19981101, end: 20011001
  3. HYZAAR [Concomitant]
  4. ATIVAN [Concomitant]
  5. CLARITIN [Concomitant]
     Dosage: 10MG
  6. XENICAL [Concomitant]
     Dosage: 120MG
  7. AMBIEN [Concomitant]
  8. MECLIZINE [Concomitant]
     Dosage: 25MG
  9. FUROSEMIDE [Concomitant]
     Dosage: 40MG
  10. TOPROL-XL [Concomitant]
     Dosage: 50MG
  11. AZITHROMYCIN [Concomitant]
     Dosage: UNK
  12. AMOXICILLIN [Concomitant]
     Dosage: 500 MG
  13. CHLORHEXIDINE GLUCONATE [Concomitant]
     Dosage: UNK
  14. CEPHALEXIN [Concomitant]
     Dosage: UNK
  15. PROPOXYPHENE NAPSYLATE W/ ACETAMINOPHEN [Concomitant]
     Dosage: UNK
  16. AROMASIN [Concomitant]
     Dosage: 25 MG
  17. HYDROCHLOROTHIAZIDE [Concomitant]
     Dosage: 12.5 MG
  18. COZAAR [Concomitant]
     Dosage: UNK
  19. LORAZEPAM [Concomitant]
     Dosage: UNK
  20. NABUMETONE [Concomitant]
     Dosage: 500 MG
  21. PLAVIX [Concomitant]
     Dosage: 75 MG
  22. LIPITOR [Concomitant]
     Dosage: 20 MG
  23. BONIVA [Concomitant]
     Dosage: 150 MG / ONCE MONTHLY
  24. LISINOPRIL [Concomitant]
     Dosage: UNK
  25. POLYETHYLENE GLYCOL 3350 [Concomitant]
     Dosage: UNK
  26. MEPERIDINE HCL [Concomitant]
     Dosage: 25 MG
  27. DAILY-VITE [Concomitant]
     Dosage: UNK
  28. ASPIRIN [Concomitant]
     Dosage: 325 MG
  29. CARISOPRODOL [Concomitant]
     Dosage: 350 MG
  30. TAMOXIFEN CITRATE [Concomitant]
     Dosage: 10 MG
  31. EFFEXOR XR [Concomitant]
     Indication: MENOPAUSE
     Dosage: 75 MG
  32. EFFEXOR XR [Concomitant]
     Dosage: 37.5 MG, UNK
  33. HYDROCODONE [Concomitant]
     Dosage: 7.5 MG/500 MG
  34. DIFLUCAN [Concomitant]
     Dosage: 100 MG
  35. KYTRIL [Concomitant]
     Dosage: 1 MG
  36. FAMVIR                                  /NET/ [Concomitant]
     Dosage: 500 MG
  37. PROCHLORPERAZINE [Concomitant]
     Dosage: UNK
  38. NEXIUM [Concomitant]
     Dosage: UNK
  39. DEXAMETHASONE [Concomitant]
     Dosage: 4 MG
  40. ATENOLOL [Concomitant]
     Dosage: 25 MG
  41. DIPHENHYDRAMINE [Concomitant]
     Dosage: UNK
  42. FAMOTIDINE [Concomitant]
     Dosage: 20 MG
  43. CIPRO [Concomitant]
     Dosage: UNK
  44. ADIPEX [Concomitant]
     Dosage: UNK
  45. CALCIUM [Concomitant]
     Dosage: 1500 MG, UNK
  46. LASIX [Concomitant]
     Dosage: 40 MG, DAILY

REACTIONS (47)
  - ALOPECIA [None]
  - ANXIETY [None]
  - ASTHENIA [None]
  - BLOOD PRESSURE DECREASED [None]
  - BREAST CANCER [None]
  - BREAST PROSTHESIS USER [None]
  - BREAST RECONSTRUCTION [None]
  - CELLULITIS [None]
  - CEREBROVASCULAR ACCIDENT [None]
  - CHEMOTHERAPY [None]
  - CHEST PAIN [None]
  - COMPRESSION FRACTURE [None]
  - DECREASED ACTIVITY [None]
  - DILATATION VENTRICULAR [None]
  - DIZZINESS [None]
  - DYSPHEMIA [None]
  - DYSPNOEA [None]
  - HAEMATURIA [None]
  - HEMIPARESIS [None]
  - HEPATIC LESION [None]
  - HYPERTENSION [None]
  - HYPOCALCAEMIA [None]
  - HYPOKALAEMIA [None]
  - HYPOTENSION [None]
  - INFECTION [None]
  - INJURY [None]
  - LOSS OF CONSCIOUSNESS [None]
  - LYMPHOEDEMA [None]
  - MALAISE [None]
  - MARITAL PROBLEM [None]
  - MASTECTOMY [None]
  - MITRAL VALVE INCOMPETENCE [None]
  - MITRAL VALVE PROLAPSE [None]
  - MULTIPLE INJURIES [None]
  - MUSCULOSKELETAL PAIN [None]
  - NEUTROPENIA [None]
  - OSTEOPENIA [None]
  - PALPITATIONS [None]
  - PARAESTHESIA [None]
  - PARTNER STRESS [None]
  - PYREXIA [None]
  - RIGHT ATRIAL DILATATION [None]
  - ROTATOR CUFF SYNDROME [None]
  - SCAN LYMPH NODES [None]
  - STREPTOCOCCAL SEPSIS [None]
  - TENDONITIS [None]
  - THROMBOCYTOPENIA [None]
